FAERS Safety Report 8120692-3 (Version None)
Quarter: 2012Q1

REPORT INFORMATION
  Report Type: 
  Country: None (occurrence: None)
  Receive Date: 20120207
  Receipt Date: 20120127
  Transmission Date: 20120608
  Serious: Yes (Other)
  Sender: FDA-Public Use
  Company Number: US-BAYER-2011-074199

PATIENT
  Age: 29 Year
  Sex: Female
  Weight: 104 kg

DRUGS (5)
  1. YAZ [Suspect]
     Indication: CONTRACEPTION
     Dosage: UNK
     Dates: start: 20071101, end: 20100501
  2. YAZ [Suspect]
     Dosage: UNK
     Dates: start: 20070701, end: 20070901
  3. KLONOPIN [Concomitant]
     Dosage: 1 TABLET EVERY 6 HOURS AS NEEDED
     Route: 048
     Dates: start: 20090717
  4. YASMIN [Suspect]
     Indication: CONTRACEPTION
     Dosage: UNK
     Dates: start: 20071001, end: 20071001
  5. VITAMIN B-12 [Concomitant]

REACTIONS (9)
  - CHEST PAIN [None]
  - NAUSEA [None]
  - CHOLELITHIASIS [None]
  - POST CHOLECYSTECTOMY SYNDROME [None]
  - GASTROINTESTINAL DISORDER [None]
  - CHOLECYSTITIS CHRONIC [None]
  - ANXIETY [None]
  - DYSPNOEA [None]
  - MENTAL DISORDER [None]
